FAERS Safety Report 6667664-3 (Version None)
Quarter: 2010Q2

REPORT INFORMATION
  Report Type: 
  Country: None (occurrence: None)
  Receive Date: 20100405
  Receipt Date: 20100329
  Transmission Date: 20101027
  Serious: Yes (Other)
  Sender: FDA-Public Use
  Company Number: B0644635A

PATIENT
  Age: 66 Year
  Sex: Female

DRUGS (2)
  1. VALTREX [Suspect]
     Indication: DRUG USE FOR UNKNOWN INDICATION
     Dosage: 500MG PER DAY
     Route: 048
     Dates: start: 20100324, end: 20100324
  2. VALTREX [Suspect]
     Dosage: 250MG PER DAY
     Route: 048
     Dates: start: 20100325, end: 20100328

REACTIONS (2)
  - ENCEPHALOPATHY [None]
  - PORIOMANIA [None]
